FAERS Safety Report 6499133-8 (Version None)
Quarter: 2009Q4

REPORT INFORMATION
  Report Type: 
  Country: None (occurrence: None)
  Receive Date: 20091127
  Receipt Date: 20090831
  Transmission Date: 20100525
  Serious: Yes (Other)
  Sender: FDA-Public Use
  Company Number: WAES 0908USA05032

PATIENT
  Age: 52 Year
  Sex: Female

DRUGS (6)
  1. FOSAMAX [Suspect]
  2. PREDNISONE [Suspect]
     Dosage: 5 MG/DAILY
  3. FOLIC ACID [Concomitant]
  4. LISINOPRIL [Concomitant]
  5. METHOTREXATE [Concomitant]
  6. TRAMADOL HYDROCHLORIDE [Concomitant]

REACTIONS (4)
  - FRACTURE [None]
  - JAW DISORDER [None]
  - OSTEONECROSIS [None]
  - VIITH NERVE INJURY [None]
